FAERS Safety Report 5004807-1 (Version None)
Quarter: 2006Q1

REPORT INFORMATION
  Report Type: 
  Country: None (occurrence: None)
  Receive Date: 20060321
  Receipt Date: 20060130
  Transmission Date: 20060701
  Serious: No
  Sender: FDA-Public Use
  Company Number: YPA20050649

PATIENT
  Age: 95 Year
  Sex: Female
  Weight: 53.6 kg

DRUGS (6)
  1. VESICARE [Suspect]
     Indication: POLLAKIURIA
     Dosage: 5 MG, ORAL
     Route: 048
     Dates: start: 20051101, end: 20051117
  2. TOPROL-XL [Concomitant]
  3. TRENTAL ^AVENTIS PHARMA^ [Concomitant]
  4. ASPIRIN [Concomitant]
  5. ACIPHEX [Concomitant]
  6. SYNTHROID [Concomitant]

REACTIONS (2)
  - AMNESIA [None]
  - MEMORY IMPAIRMENT [None]
